FAERS Safety Report 15090155 (Version 1)
Quarter: 2018Q2

REPORT INFORMATION
  Report Type: Spontaneous
  Country: ES (occurrence: ES)
  Receive Date: 20180629
  Receipt Date: 20180629
  Transmission Date: 20180711
  Serious: Yes (Hospitalization)
  Sender: FDA-Public Use
  Company Number: ES-ASTRAZENECA-2018SE81366

PATIENT
  Age: 87 Year
  Sex: Female
  Weight: 52 kg

DRUGS (11)
  1. EMULIQUENSIMPLE [Concomitant]
  2. IRBESARTAN. [Concomitant]
     Active Substance: IRBESARTAN
     Dosage: 75 MG DAILY, 0-0-1/2
     Route: 048
     Dates: start: 2017
  3. OMEPRAZOL (2141A) [Suspect]
     Active Substance: OMEPRAZOLE
     Dosage: 20 MG DAILY, 1-0-0
     Route: 048
     Dates: start: 2017
  4. CITALOPRAM [Interacting]
     Active Substance: CITALOPRAM HYDROBROMIDE
     Dosage: 10 MG DAILY, 0-0-1
     Route: 048
     Dates: start: 2017
  5. ITRACONAZOLE. [Interacting]
     Active Substance: ITRACONAZOLE
     Indication: SKIN CANDIDA
     Dosage: 1/24 HOURS, UNKNOWN DOSE
     Route: 048
     Dates: start: 20180327, end: 20180330
  6. SINEMET PLUS [Concomitant]
     Active Substance: CARBIDOPA\LEVODOPA
     Route: 048
  7. ESPIRONOLACTONA (326A) [Concomitant]
     Active Substance: SPIRONOLACTONE
     Dosage: 25 MG DAILY, 0-1-0
     Route: 048
     Dates: start: 2017
  8. FERROPROTINA [Concomitant]
     Route: 048
  9. FUROSEMIDE. [Concomitant]
     Active Substance: FUROSEMIDE
     Dosage: 30 MG DAILY, 1-1/2-0
     Route: 048
     Dates: start: 2017
  10. ATORVASTATIN [Interacting]
     Active Substance: ATORVASTATIN
     Dosage: 40 MG DAILY, 0-0-1
     Route: 048
  11. ADIRO [Concomitant]
     Active Substance: ASPIRIN
     Route: 048

REACTIONS (2)
  - Status epilepticus [Not Recovered/Not Resolved]
  - Drug interaction [Not Recovered/Not Resolved]

NARRATIVE: CASE EVENT DATE: 20180329
